FAERS Safety Report 23559599 (Version 2)
Quarter: 2024Q2

REPORT INFORMATION
  Report Type: Spontaneous
  Country: US (occurrence: US)
  Receive Date: 20240223
  Receipt Date: 20240429
  Transmission Date: 20240716
  Serious: Yes (Death)
  Sender: FDA-Public Use
  Company Number: US-PFIZER INC-202200513577

PATIENT
  Age: 77 Year
  Sex: Female

DRUGS (11)
  1. IBRANCE [Suspect]
     Active Substance: PALBOCICLIB
     Indication: Breast cancer female
     Dosage: EVERY NIGHT FOR 2 WEEKS ON / 2 WEEKS OFF/DAILY FOR 14 DAYS (28 DAYS PER CYCLE)
     Route: 048
  2. LETROZOLE [Concomitant]
     Active Substance: LETROZOLE
  3. ELIQUIS [Concomitant]
     Active Substance: APIXABAN
  4. GABAPENTIN [Concomitant]
     Active Substance: GABAPENTIN
  5. LASIX [Concomitant]
     Active Substance: FUROSEMIDE
  6. LOPRESSOR [Concomitant]
     Active Substance: METOPROLOL TARTRATE
  7. SYNTHROID [Concomitant]
     Active Substance: LEVOTHYROXINE SODIUM
  8. ZOLPIDEM [Concomitant]
     Active Substance: ZOLPIDEM TARTRATE
  9. AMITRIPTYLINE [Concomitant]
     Active Substance: AMITRIPTYLINE
  10. METOPROLOL [Concomitant]
     Active Substance: METOPROLOL
  11. BREZTRI [Concomitant]
     Active Substance: BUDESONIDE\FORMOTEROL\GLYCOPYRROLATE

REACTIONS (3)
  - Death [Fatal]
  - Off label use [Unknown]
  - Product prescribing error [Unknown]
